FAERS Safety Report 14083579 (Version 1)
Quarter: 2017Q4

REPORT INFORMATION
  Report Type: Report from Study
  Country: US (occurrence: US)
  Receive Date: 20171013
  Receipt Date: 20171013
  Transmission Date: 20180321
  Serious: Yes (Death)
  Sender: FDA-Public Use
  Company Number: US-PFIZER INC-2017439663

PATIENT

DRUGS (3)
  1. CARBOPLATIN. [Suspect]
     Active Substance: CARBOPLATIN
     Indication: SMALL CELL LUNG CANCER EXTENSIVE STAGE
     Dosage: CYCLIC (AT AN AUC OF 5 ON DAY 1 IN 21-DAY TREATMENT CYCLE)
     Route: 042
  2. ETOPOSIDE. [Suspect]
     Active Substance: ETOPOSIDE
     Indication: SMALL CELL LUNG CANCER EXTENSIVE STAGE
     Dosage: 100 MG/M2, CYCLIC (ON DAYS 1, 2, AND 3 IN 21-DAY TREATMENT CYCLE)
     Route: 042
  3. LORVOTUZUMAB MERTANSINE [Suspect]
     Active Substance: LORVOTUZUMAB MERTANSINE
     Indication: SMALL CELL LUNG CANCER
     Dosage: 112 MG/M2 OR 90 MG/M2, CYCLIC (ON DAYS 1 AND 8 IN 21-DAY TREATMENT CYCLE)
     Route: 042

REACTIONS (1)
  - Pneumonia [Fatal]
